FAERS Safety Report 5388612-2 (Version None)
Quarter: 2007Q3

REPORT INFORMATION
  Report Type: 
  Country: None (occurrence: None)
  Receive Date: 20070716
  Receipt Date: 20070709
  Transmission Date: 20080115
  Serious: Yes (Other)
  Sender: FDA-Public Use
  Company Number: US-PFIZER INC-2007056590

PATIENT
  Sex: Male

DRUGS (4)
  1. LIPITOR [Suspect]
     Indication: BLOOD CHOLESTEROL INCREASED
  2. NEXIUM [Concomitant]
  3. TRAZODONE HCL [Concomitant]
  4. DIOVAN HCT [Concomitant]

REACTIONS (1)
  - BLOOD CHOLESTEROL INCREASED [None]
